FAERS Safety Report 11145395 (Version 1)
Quarter: 2015Q2

REPORT INFORMATION
  Report Type: Spontaneous
  Country: US (occurrence: US)
  Receive Date: 20150526
  Receipt Date: 20150526
  Transmission Date: 20150821
  Serious: Yes (Hospitalization, Congenital Anomaly, Other)
  Sender: FDA-Public Use
  Company Number: US-EMD SERONO-7319944

PATIENT
  Age: 0 Day
  Sex: Female

DRUGS (2)
  1. CLOMID [Suspect]
     Active Substance: CLOMIPHENE CITRATE
     Route: 050
     Dates: start: 199308
  2. SEROPHENE [Suspect]
     Active Substance: CLOMIPHENE CITRATE
     Route: 050
     Dates: start: 199308, end: 199401

REACTIONS (15)
  - Pain [Unknown]
  - Foetal exposure during pregnancy [Recovered/Resolved]
  - Premature baby [Recovered/Resolved]
  - Fallot^s tetralogy [Unknown]
  - Ventricular hypertrophy [Unknown]
  - Emotional distress [Unknown]
  - Scar [Unknown]
  - Ventricular septal defect [Unknown]
  - Heart disease congenital [Unknown]
  - Epiphyses delayed fusion [Recovered/Resolved]
  - Pulmonary artery stenosis congenital [Unknown]
  - Immune system disorder [Unknown]
  - Thrombosis [Unknown]
  - Tricuspid valve incompetence [Unknown]
  - Pulmonary valve incompetence [Unknown]

NARRATIVE: CASE EVENT DATE: 19940908
